FAERS Safety Report 9209798 (Version 1)
Quarter: 2013Q2

REPORT INFORMATION
  Report Type: Spontaneous
  Country: US (occurrence: None)
  Receive Date: 20130403
  Receipt Date: 20130403
  Transmission Date: 20140414
  Serious: Yes (Other)
  Sender: FDA-Public Use
  Company Number: None

PATIENT
  Age: 66 Year
  Sex: Female
  Weight: 58.97 kg

DRUGS (1)
  1. LEVAQUIN [Suspect]
     Indication: ANTIBIOTIC THERAPY
     Dates: start: 20121218

REACTIONS (10)
  - Fall [None]
  - Abnormal behaviour [None]
  - Muscular weakness [None]
  - Amnesia [None]
  - Tremor [None]
  - Syncope [None]
  - Coordination abnormal [None]
  - Hypoaesthesia [None]
  - Diabetes mellitus [None]
  - Confusional state [None]
